FAERS Safety Report 12662923 (Version 1)
Quarter: 2016Q3

REPORT INFORMATION
  Report Type: Spontaneous
  Country: US (occurrence: US)
  Receive Date: 20160818
  Receipt Date: 20160818
  Transmission Date: 20161109
  Serious: Yes (Other)
  Sender: FDA-Public Use
  Company Number: US-STRIDES ARCOLAB LIMITED-2016SP010229

PATIENT

DRUGS (9)
  1. TACROLIMUS. [Interacting]
     Active Substance: TACROLIMUS
     Dosage: 1 MG, ONCE A WEEK
  2. TACROLIMUS. [Interacting]
     Active Substance: TACROLIMUS
     Dosage: 4 TO 8 MG PER DAY MAINTANENCE DOSE
  3. TACROLIMUS. [Suspect]
     Active Substance: TACROLIMUS
     Indication: IMMUNOSUPPRESSION
     Dosage: 2 MG, BID
  4. LAMIVUDINE. [Concomitant]
     Active Substance: LAMIVUDINE
     Indication: HIV INFECTION
     Dosage: UNK
  5. METHYLPREDNISOLONE. [Concomitant]
     Active Substance: METHYLPREDNISOLONE
     Dosage: 600 MG, UNK
  6. KALETRA [Interacting]
     Active Substance: LOPINAVIR\RITONAVIR
     Dosage: UNK
  7. METHYLPREDNISOLONE. [Concomitant]
     Active Substance: METHYLPREDNISOLONE
     Indication: IMMUNOSUPPRESSION
     Dosage: 1 G, UNK
  8. STAVUDINE. [Concomitant]
     Active Substance: STAVUDINE
     Indication: HIV INFECTION
     Dosage: UNK
  9. KALETRA [Interacting]
     Active Substance: LOPINAVIR\RITONAVIR
     Indication: HIV INFECTION
     Dosage: 1 TABLETS, UNK

REACTIONS (1)
  - Drug interaction [Unknown]
